FAERS Safety Report 18936574 (Version 4)
Quarter: 2021Q2

REPORT INFORMATION
  Report Type: Report from Study
  Country: MX (occurrence: MX)
  Receive Date: 20210224
  Receipt Date: 20210416
  Transmission Date: 20210717
  Serious: Yes (Life-Threatening, Other)
  Sender: FDA-Public Use
  Company Number: NVSC2020MX012531

PATIENT
  Age: 58 Year
  Sex: Male
  Weight: 92 kg

DRUGS (8)
  1. ENTRESTO [Suspect]
     Active Substance: SACUBITRIL\VALSARTAN
     Indication: CARDIAC DISORDER
     Dosage: 1 DF (100 MG), BID
     Route: 048
     Dates: end: 201805
  2. ENTRESTO [Suspect]
     Active Substance: SACUBITRIL\VALSARTAN
     Indication: BLOOD PRESSURE INCREASED
     Dosage: 0.5 DF, QD (1/2, 200 MG) (2 YEAR AND HALF YEARS AGO)
     Route: 048
  3. LASIX [Concomitant]
     Active Substance: FUROSEMIDE
     Indication: PROPHYLAXIS
     Dosage: 1 DF, QD (40 MG)
     Route: 048
  4. ENTRESTO [Suspect]
     Active Substance: SACUBITRIL\VALSARTAN
     Dosage: 100 MG, QD  (2 OF 50 MG)
     Route: 048
     Dates: start: 201805
  5. ENALAPRIL [Concomitant]
     Active Substance: ENALAPRIL
     Indication: CARDIAC DISORDER
     Dosage: 3 DF, QD
     Route: 048
     Dates: end: 2018
  6. NIFEDIPINE. [Concomitant]
     Active Substance: NIFEDIPINE
     Indication: CARDIAC DISORDER
     Dosage: 1 DF, QD
     Route: 048
     Dates: end: 2018
  7. ENTRESTO [Suspect]
     Active Substance: SACUBITRIL\VALSARTAN
     Dosage: 100 MG, QD (HALF OF 100 MG)
     Route: 048
  8. ASPIRIN. [Concomitant]
     Active Substance: ASPIRIN
     Indication: CARDIAC DISORDER
     Dosage: 1 DF, QD (500 MG)
     Route: 048

REACTIONS (34)
  - Lethargy [Unknown]
  - Headache [Recovered/Resolved]
  - Fatigue [Recovered/Resolved]
  - Insomnia [Not Recovered/Not Resolved]
  - Gastric disorder [Not Recovered/Not Resolved]
  - Discomfort [Not Recovered/Not Resolved]
  - Herpes virus infection [Not Recovered/Not Resolved]
  - Cardiac dysfunction [Not Recovered/Not Resolved]
  - Influenza [Unknown]
  - Nausea [Recovered/Resolved]
  - Sciatica [Not Recovered/Not Resolved]
  - Stress [Unknown]
  - Product use in unapproved indication [Unknown]
  - Renal impairment [Unknown]
  - Chest pain [Recovered/Resolved]
  - Vomiting [Unknown]
  - Diabetes mellitus [Not Recovered/Not Resolved]
  - Cough [Unknown]
  - Oropharyngeal discomfort [Unknown]
  - Arthralgia [Not Recovered/Not Resolved]
  - Tension [Unknown]
  - Arrhythmia [Recovered/Resolved]
  - Feeling abnormal [Unknown]
  - Rhinorrhoea [Unknown]
  - Abdominal discomfort [Not Recovered/Not Resolved]
  - Diarrhoea [Recovered/Resolved]
  - Abdominal pain upper [Not Recovered/Not Resolved]
  - Headache [Recovering/Resolving]
  - Muscle spasms [Not Recovered/Not Resolved]
  - Flatulence [Not Recovered/Not Resolved]
  - Heart rate irregular [Unknown]
  - Dyschezia [Not Recovered/Not Resolved]
  - Pruritus [Unknown]
  - Wrong technique in product usage process [Unknown]

NARRATIVE: CASE EVENT DATE: 201805
